FAERS Safety Report 4983691-6 (Version None)
Quarter: 2006Q2

REPORT INFORMATION
  Report Type: 
  Country: None (occurrence: None)
  Receive Date: 20060425
  Receipt Date: 20060425
  Transmission Date: 20061013
  Serious: Yes (Hospitalization, Disabling)
  Sender: FDA-Public Use
  Company Number: None

PATIENT
  Age: 61 Year
  Sex: Female
  Weight: 90.7194 kg

DRUGS (2)
  1. LEVAQUIN [Suspect]
     Indication: ARTHROPOD BITE
     Dates: start: 20050815, end: 20050901
  2. LEVAQUIN [Suspect]
     Indication: STAPHYLOCOCCAL INFECTION
     Dates: start: 20050815, end: 20050901

REACTIONS (4)
  - DIFFICULTY IN WALKING [None]
  - MENISCUS LESION [None]
  - OSTEOARTHRITIS [None]
  - SHOULDER PAIN [None]
